FAERS Safety Report 9967066 (Version 2)
Quarter: 2014Q1

REPORT INFORMATION
  Report Type: Spontaneous
  Country: US (occurrence: US)
  Receive Date: 20140305
  Receipt Date: 20140305
  Transmission Date: 20141002
  Serious: Yes (Disabling)
  Sender: FDA-Public Use
  Company Number: US-GE HEALTHCARE MEDICAL DIAGNOSTICS-OSCN-PR-0904S-0189

PATIENT
  Age: 50 Year
  Sex: Male

DRUGS (7)
  1. OMNISCAN [Suspect]
     Indication: PRODUCT USED FOR UNKNOWN INDICATION
     Route: 042
     Dates: start: 20040114, end: 20040114
  2. OMNISCAN [Suspect]
     Route: 042
     Dates: start: 20040619, end: 20040619
  3. GADOLINIUM (UNSPECIFIED) [Suspect]
     Indication: PRODUCT USED FOR UNKNOWN INDICATION
     Route: 065
     Dates: start: 19991012, end: 19991012
  4. MAGNEVIST [Suspect]
     Route: 065
     Dates: start: 19991012, end: 19991012
  5. MAGNEVIST [Suspect]
     Route: 065
     Dates: start: 20040114, end: 20040114
  6. OPTIMARK [Suspect]
     Route: 065
     Dates: start: 19991012, end: 19991012
  7. OPTIMARK [Suspect]
     Route: 065
     Dates: start: 20040114, end: 20040114

REACTIONS (1)
  - Nephrogenic systemic fibrosis [Not Recovered/Not Resolved]
